FAERS Safety Report 24297712 (Version 1)
Quarter: 2024Q3

REPORT INFORMATION
  Report Type: Spontaneous
  Country: US (occurrence: US)
  Receive Date: 20240909
  Receipt Date: 20240909
  Transmission Date: 20241017
  Serious: Yes (Other)
  Sender: ENDO
  Company Number: US-ENDO USA, INC.-2024-003330

PATIENT
  Sex: Male

DRUGS (3)
  1. TESTOPEL [Suspect]
     Active Substance: TESTOSTERONE
     Indication: Blood testosterone decreased
     Dosage: 450 MILLIGRAM, Q12W (6 PELLETS IMPLANTED IN BUTTOCKS)
     Route: 058
     Dates: start: 201905
  2. TESTOPEL [Suspect]
     Active Substance: TESTOSTERONE
     Indication: Blood testosterone decreased
     Dosage: 450 MILLIGRAM, Q12W (6 PELLETS IMPLANTED IN BUTTOCKS)
     Route: 058
     Dates: start: 201905
  3. TESTOPEL [Suspect]
     Active Substance: TESTOSTERONE
     Indication: Blood testosterone decreased
     Dosage: 450 MILLIGRAM, Q12W (6 PELLETS IMPLANTED IN BUTTOCKS)
     Route: 058
     Dates: start: 201905

REACTIONS (3)
  - Coronary artery disease [Not Recovered/Not Resolved]
  - Blood testosterone decreased [Unknown]
  - Intentional dose omission [Unknown]
